FAERS Safety Report 21501934 (Version 1)
Quarter: 2022Q4

REPORT INFORMATION
  Report Type: Spontaneous
  Country: FR (occurrence: FR)
  Receive Date: 20221025
  Receipt Date: 20221025
  Transmission Date: 20230112
  Serious: Yes (Other)
  Sender: FDA-Public Use
  Company Number: FR-BAYER-2022P015836

PATIENT
  Age: 73 Year
  Sex: Female

DRUGS (3)
  1. EYLEA [Suspect]
     Active Substance: AFLIBERCEPT
     Indication: Age-related macular degeneration
     Dosage: UNK, SOLUTION FOR INJECTION; STRENGTH: 40 MG/ML
     Route: 031
  2. EYLEA [Suspect]
     Active Substance: AFLIBERCEPT
     Dosage: UNK, SOLUTION FOR INJECTION; STRENGTH: 40 MG/ML
     Route: 031
  3. EYLEA [Suspect]
     Active Substance: AFLIBERCEPT
     Dosage: LEFT EYE, SOLUTION FOR INJECTION; STRENGTH: 40 MG/ML
     Dates: start: 20220906

REACTIONS (6)
  - Iris adhesions [Unknown]
  - Endophthalmitis [Recovered/Resolved with Sequelae]
  - Hypopyon [Unknown]
  - Vitritis [Unknown]
  - Retinal disorder [Unknown]
  - Corneal oedema [Unknown]

NARRATIVE: CASE EVENT DATE: 20220913
